FAERS Safety Report 8577753-4 (Version None)
Quarter: 2012Q3

REPORT INFORMATION
  Report Type: 
  Country: None (occurrence: None)
  Receive Date: 20120808
  Receipt Date: 20120709
  Transmission Date: 20120928
  Serious: Yes (Hospitalization, Other)
  Sender: FDA-Public Use
  Company Number: US-BIOGENIDEC-2012BI009217

PATIENT
  Age: 49 Year
  Sex: Male
  Weight: 65 kg

DRUGS (55)
  1. ONDANSETRON [Concomitant]
     Route: 048
  2. POLYETHYLENE GLYCOL [Concomitant]
     Route: 048
  3. VITAMIN B COMPLEX CAP [Concomitant]
     Route: 048
  4. TYSABRI [Suspect]
     Indication: MULTIPLE SCLEROSIS
     Route: 042
     Dates: start: 20080408, end: 20120221
  5. NORCO [Concomitant]
     Route: 048
  6. MORPHINE SULFATE [Concomitant]
     Indication: FACIAL PAIN
     Route: 042
  7. SERTRALINE [Concomitant]
     Route: 048
  8. COQ10 [Concomitant]
     Route: 048
  9. GINKOBA BILOBA [Concomitant]
     Route: 048
  10. IBUPROFEN [Concomitant]
     Indication: PAIN
     Route: 048
  11. MAGNESIUM ASPARTATE [Concomitant]
     Route: 048
  12. MULTI-VITAMIN [Concomitant]
     Route: 048
  13. NORCO [Concomitant]
     Indication: HEADACHE
     Route: 048
  14. MORPHINE SULFATE [Concomitant]
     Indication: PAIN
     Route: 042
  15. FAMOTIDINE [Concomitant]
     Route: 042
  16. SODIUM CHLORIDE [Concomitant]
     Route: 042
  17. MIRTAZAPINE [Concomitant]
     Route: 048
  18. SUDAFED 12 HOUR [Concomitant]
     Indication: GENERAL SYMPTOM
     Route: 048
  19. NORCO [Concomitant]
     Route: 048
  20. TRIMETHOBENZAMIDE HCL [Concomitant]
     Route: 030
  21. AMLODIPINE [Concomitant]
     Indication: HYPERTENSION
     Route: 048
  22. FAMOTIDINE [Concomitant]
     Route: 048
  23. MAGNESIUM HYDROXIDE TAB [Concomitant]
     Route: 048
  24. PROMETHAZINE [Concomitant]
     Route: 048
  25. NORCO [Concomitant]
     Indication: PAIN
     Route: 048
  26. MORPHINE SULFATE [Concomitant]
     Indication: HEADACHE
     Route: 042
  27. ONDANSETRON [Concomitant]
     Route: 042
  28. ENOXAPARIN [Concomitant]
     Indication: THROMBOSIS PROPHYLAXIS
     Route: 058
  29. LIDOCAINE 1% [Concomitant]
  30. TEGRETOL [Concomitant]
     Indication: CONVULSION
     Route: 048
  31. HYDRALAZINE HCL [Concomitant]
     Route: 042
  32. PREGABALIN [Concomitant]
     Route: 048
  33. TIZANIDINE HYDROCHLORIDE [Concomitant]
     Route: 048
  34. ACETAMINOPHEN [Concomitant]
  35. GINSENG [Concomitant]
     Route: 048
  36. METHYLPHENIDATE [Concomitant]
     Route: 048
  37. POTASSIUM CHLORIDE [Concomitant]
     Indication: ELECTROLYTE SUBSTITUTION THERAPY
     Route: 048
  38. BISACODYL [Concomitant]
     Route: 054
  39. DEXTROSE 50% [Concomitant]
     Route: 042
  40. GLUTOSE [Concomitant]
     Route: 048
  41. ZOLPIDEM [Concomitant]
     Route: 048
  42. AMANTADINE HCL [Concomitant]
     Route: 048
  43. NALOXONE [Concomitant]
  44. METOCLOPRAMIDE [Concomitant]
     Route: 048
  45. BACLOFEN [Concomitant]
     Indication: MUSCLE SPASTICITY
     Route: 048
     Dates: end: 20120401
  46. BACLOFEN [Concomitant]
     Indication: PAIN
     Route: 048
     Dates: end: 20120401
  47. DOCUSATE SODIUM [Concomitant]
     Route: 048
  48. SODIUM CHLORIDE [Concomitant]
     Route: 045
  49. DIPHENHYDRAMINE HYDROCHLORIDE [Concomitant]
     Indication: HYPERSENSITIVITY
     Route: 042
  50. TAMSULOSIN HCL [Concomitant]
     Indication: URINARY RETENTION
     Route: 048
  51. CALCIUM [Concomitant]
     Route: 048
  52. FISH OIL [Concomitant]
  53. NICODERM CQ [Concomitant]
     Route: 062
  54. FENTANYL [Concomitant]
     Indication: PAIN
     Route: 042
  55. TORADOL [Concomitant]
     Dates: start: 20120301

REACTIONS (4)
  - SINUSITIS [None]
  - IMMUNE RECONSTITUTION SYNDROME [None]
  - CRYPTOCOCCAL FUNGAEMIA [None]
  - MENINGITIS CRYPTOCOCCAL [None]
